FAERS Safety Report 4404218-3 (Version None)
Quarter: 2004Q3

REPORT INFORMATION
  Report Type: 
  Country: None (occurrence: None)
  Receive Date: 20040719
  Receipt Date: 20040629
  Transmission Date: 20050211
  Serious: Yes (Death)
  Sender: FDA-Public Use
  Company Number: 6009584

PATIENT
  Age: 81 Year
  Sex: Male

DRUGS (4)
  1. DIKLOFENAC [Suspect]
     Indication: NECK PAIN
     Dosage: 150 MG (150 MG, 1 IN 1 D) ORAL
     Route: 048
     Dates: start: 20040407, end: 20040411
  2. ENALAPRIL MALEATE [Suspect]
     Indication: CARDIAC FAILURE
     Dosage: 2,5 MG ORAL
     Route: 048
     Dates: end: 20040411
  3. IMIPUGAN (FUROSEMIDE) [Concomitant]
  4. DIGOXIN RECIP (DIGOXIN) [Concomitant]

REACTIONS (10)
  - ABDOMINAL PAIN [None]
  - BUNDLE BRANCH BLOCK [None]
  - CARDIAC FIBRILLATION [None]
  - DEPRESSED LEVEL OF CONSCIOUSNESS [None]
  - DRUG INTERACTION [None]
  - GENERAL PHYSICAL HEALTH DETERIORATION [None]
  - MELAENA [None]
  - MULTI-ORGAN FAILURE [None]
  - RENAL FAILURE [None]
  - VENTRICULAR TACHYCARDIA [None]
